FAERS Safety Report 4652221-0 (Version None)
Quarter: 2005Q2

REPORT INFORMATION
  Report Type: 
  Country: None (occurrence: None)
  Receive Date: 20050504
  Receipt Date: 20050426
  Transmission Date: 20051028
  Serious: Yes (Hospitalization, Other)
  Sender: FDA-Public Use
  Company Number: US-JNJFOC-20041105171

PATIENT
  Sex: Male
  Weight: 63.5 kg

DRUGS (2)
  1. REMICADE [Suspect]
     Route: 042
  2. METHOTREXATE [Concomitant]

REACTIONS (4)
  - CELLULITIS [None]
  - IMPAIRED HEALING [None]
  - LIPOMA [None]
  - PSEUDOMENINGOCELE [None]
